FAERS Safety Report 10073429 (Version 1)
Quarter: 2014Q2

REPORT INFORMATION
  Report Type: Report from Study
  Country: US (occurrence: US)
  Receive Date: 20140411
  Receipt Date: 20140411
  Transmission Date: 20141212
  Serious: Yes (Hospitalization)
  Sender: FDA-Public Use
  Company Number: US-ABBVIE-14K-163-1221393-00

PATIENT
  Age: 8 Year
  Sex: Female

DRUGS (9)
  1. LUPRON DEPOT [Suspect]
     Indication: MENSTRUATION IRREGULAR
     Route: 030
     Dates: start: 20120417, end: 20130626
  2. HPN-100 [Suspect]
     Indication: AMINO ACID METABOLISM DISORDER
     Route: 048
     Dates: start: 20100812, end: 20121029
  3. HPN-100 [Suspect]
     Route: 048
     Dates: start: 20121030, end: 20130203
  4. HPN-100 [Suspect]
     Route: 048
     Dates: start: 20130204, end: 20130606
  5. HPN-100 [Suspect]
     Route: 048
     Dates: start: 20130607, end: 20130626
  6. ESSENTIAL AMINO ACIDS [Concomitant]
     Indication: PRODUCT USED FOR UNKNOWN INDICATION
     Dates: start: 2009
  7. TEA TREE OIL [Concomitant]
     Indication: PRODUCT USED FOR UNKNOWN INDICATION
     Dates: start: 201001
  8. CITRULLINE [Concomitant]
     Indication: PRODUCT USED FOR UNKNOWN INDICATION
     Dates: start: 20101029
  9. ZINC [Concomitant]
     Indication: PRODUCT USED FOR UNKNOWN INDICATION
     Dates: start: 20110813

REACTIONS (5)
  - Hyperammonaemia [Recovered/Resolved]
  - Pancytopenia [Recovered/Resolved]
  - Gastrooesophageal reflux disease [Unknown]
  - Pneumonia [Recovering/Resolving]
  - Lethargy [Unknown]
